FAERS Safety Report 19700321 (Version 3)
Quarter: 2022Q2

REPORT INFORMATION
  Report Type: Spontaneous
  Country: US (occurrence: US)
  Receive Date: 20210814
  Receipt Date: 20220516
  Transmission Date: 20220721
  Serious: Yes (Hospitalization)
  Sender: FDA-Public Use
  Company Number: US-NOVARTISTESTPH-NVSC2021US181533

PATIENT
  Sex: Male

DRUGS (2)
  1. TAFINLAR [Suspect]
     Active Substance: DABRAFENIB MESYLATE
     Indication: Brain neoplasm malignant
     Dosage: 50 MG, BID
     Route: 048
     Dates: start: 202106
  2. MEKINIST [Suspect]
     Active Substance: TRAMETINIB DIMETHYL SULFOXIDE
     Indication: Brain neoplasm malignant
     Dosage: 0.5 MG, QD
     Route: 048
     Dates: start: 202106

REACTIONS (5)
  - Sinusitis [Unknown]
  - Pyrexia [Unknown]
  - Oral pain [Unknown]
  - Dry skin [Unknown]
  - Product use in unapproved indication [Unknown]
